FAERS Safety Report 4358315-1 (Version None)
Quarter: 2004Q2

REPORT INFORMATION
  Report Type: 
  Country: None (occurrence: None)
  Receive Date: 20040514
  Receipt Date: 20040419
  Transmission Date: 20050107
  Serious: Yes (Hospitalization)
  Sender: FDA-Public Use
  Company Number: US-MERCK-0404USA01835

PATIENT

DRUGS (3)
  1. ZETIA [Suspect]
     Route: 048
     Dates: start: 20030801
  2. LOPID [Concomitant]
     Route: 065
     Dates: start: 20030801
  3. ZOCOR [Concomitant]
     Route: 048
     Dates: start: 20030801

REACTIONS (2)
  - RENAL FAILURE CHRONIC [None]
  - RHABDOMYOLYSIS [None]
